FAERS Safety Report 7379232-9 (Version None)
Quarter: 2011Q1

REPORT INFORMATION
  Report Type: 
  Country: None (occurrence: None)
  Receive Date: 20110328
  Receipt Date: 20110317
  Transmission Date: 20110831
  Serious: Yes (Other)
  Sender: FDA-Public Use
  Company Number: US-RB-024143-11

PATIENT
  Age: 30 Year
  Sex: Male

DRUGS (4)
  1. SUBOXONE [Suspect]
     Indication: PRODUCT USED FOR UNKNOWN INDICATION
     Dosage: SUBOXONE SUBLINGUAL FILM; DOSING INFORMATION UNKNOWN
     Route: 065
     Dates: start: 20110317
  2. OXY [Suspect]
     Indication: PRODUCT USED FOR UNKNOWN INDICATION
     Dosage: DOSING INFORMATION UNKNOWN
     Route: 065
  3. SUBOXONE [Suspect]
     Indication: PRODUCT USED FOR UNKNOWN INDICATION
     Dosage: UNKNOWN DOSING INFORMATION
     Route: 065
  4. AMBIEN [Suspect]
     Indication: PRODUCT USED FOR UNKNOWN INDICATION
     Dosage: DOSING INFORMATION UNKNOWN
     Route: 065

REACTIONS (14)
  - SELF-INJURIOUS IDEATION [None]
  - FEELING ABNORMAL [None]
  - DRUG INTERACTION [None]
  - DISTURBANCE IN ATTENTION [None]
  - SUBSTANCE ABUSE [None]
  - DRUG WITHDRAWAL SYNDROME [None]
  - HYPERHIDROSIS [None]
  - FATIGUE [None]
  - VOMITING [None]
  - RESTLESSNESS [None]
  - OFF LABEL USE [None]
  - DIZZINESS [None]
  - ASTHENIA [None]
  - FEELING OF BODY TEMPERATURE CHANGE [None]
